FAERS Safety Report 13437330 (Version 1)
Quarter: 2017Q2

REPORT INFORMATION
  Report Type: Spontaneous
  Country: US (occurrence: US)
  Receive Date: 20170413
  Receipt Date: 20170413
  Transmission Date: 20170830
  Serious: Yes (Other)
  Sender: FDA-Public Use
  Company Number: PHEH2017US010600

PATIENT
  Sex: Female

DRUGS (1)
  1. GILENYA [Suspect]
     Active Substance: FINGOLIMOD HYDROCHLORIDE
     Indication: RELAPSING-REMITTING MULTIPLE SCLEROSIS
     Route: 065

REACTIONS (11)
  - Multiple sclerosis relapse [Unknown]
  - Muscle spasms [Unknown]
  - Hypoaesthesia [Unknown]
  - Blindness [Unknown]
  - Speech disorder [Unknown]
  - Gait disturbance [Unknown]
  - Movement disorder [Unknown]
  - Muscular weakness [Unknown]
  - Headache [Unknown]
  - Fall [Unknown]
  - Grip strength decreased [Unknown]
